FAERS Safety Report 12081102 (Version 3)
Quarter: 2016Q2

REPORT INFORMATION
  Report Type: Report from Study
  Country: US (occurrence: US)
  Receive Date: 20160216
  Receipt Date: 20160517
  Transmission Date: 20160815
  Serious: Yes (Hospitalization)
  Sender: FDA-Public Use
  Company Number: US-JNJFOC-20160212727

PATIENT
  Age: 54 Year
  Sex: Male
  Weight: 94.35 kg

DRUGS (2)
  1. SECUKINUMAB [Suspect]
     Active Substance: SECUKINUMAB
     Indication: PRODUCT USED FOR UNKNOWN INDICATION
     Route: 065
     Dates: start: 201009, end: 201507
  2. USTEKINUMAB [Suspect]
     Active Substance: USTEKINUMAB
     Indication: PSORIASIS
     Route: 058
     Dates: start: 201009, end: 201101

REACTIONS (2)
  - Extradural abscess [Recovered/Resolved]
  - Psoas abscess [Recovered/Resolved]

NARRATIVE: CASE EVENT DATE: 20150902
